FAERS Safety Report 24121569 (Version 1)
Quarter: 2024Q3

REPORT INFORMATION
  Report Type: Spontaneous
  Country: US (occurrence: None)
  Receive Date: 20240720
  Receipt Date: 20240720
  Transmission Date: 20241016
  Serious: Yes (Other)
  Sender: Public
  Company Number: None

PATIENT
  Age: 81 Year
  Sex: Female
  Weight: 50.4 kg

DRUGS (8)
  1. LUMIFY [Suspect]
     Active Substance: BRIMONIDINE TARTRATE
     Indication: Ocular hyperaemia
     Dates: start: 20240710, end: 20240720
  2. LISINOPRIL [Concomitant]
     Active Substance: LISINOPRIL
  3. AMLODIPINE [Concomitant]
  4. omezaprole [Concomitant]
  5. ROSUVASTATIN [Concomitant]
     Active Substance: ROSUVASTATIN\ROSUVASTATIN CALCIUM
  6. , B12 [Concomitant]
  7. IRON [Concomitant]
  8. vaginal estradiol [Concomitant]

REACTIONS (12)
  - Ophthalmic migraine [None]
  - Vertigo [None]
  - Movement disorder [None]
  - Muscular weakness [None]
  - Nonspecific reaction [None]
  - Photophobia [None]
  - Visual impairment [None]
  - Pain [None]
  - Ear congestion [None]
  - Fatigue [None]
  - Asthenia [None]
  - Feeling drunk [None]

NARRATIVE: CASE EVENT DATE: 20240715
